FAERS Safety Report 23079144 (Version 3)
Quarter: 2023Q4

REPORT INFORMATION
  Report Type: Spontaneous
  Country: NG (occurrence: NG)
  Receive Date: 20231018
  Receipt Date: 20231201
  Transmission Date: 20240109
  Serious: Yes (Death)
  Sender: FDA-Public Use
  Company Number: NG-PFIZER INC-PV202300170214

PATIENT

DRUGS (1)
  1. MEROPENEM [Suspect]
     Active Substance: MEROPENEM
     Indication: Bacterial infection
     Dosage: UNK

REACTIONS (4)
  - Product counterfeit [Fatal]
  - Product reconstitution quality issue [Fatal]
  - Poor quality product administered [Fatal]
  - Drug ineffective [Fatal]
